FAERS Safety Report 23381303 (Version 1)
Quarter: 2024Q1

REPORT INFORMATION
  Report Type: Spontaneous
  Country: BR (occurrence: BR)
  Receive Date: 20240109
  Receipt Date: 20240109
  Transmission Date: 20240410
  Serious: Yes (Other)
  Sender: FDA-Public Use
  Company Number: BR-TAKEDA-2024TUS002065

PATIENT
  Age: 75 Year
  Sex: Female

DRUGS (3)
  1. DEXILANT [Suspect]
     Active Substance: DEXLANSOPRAZOLE
     Indication: Gastritis
     Dosage: UNK
     Route: 048
     Dates: start: 20240101
  2. DEXILANT [Suspect]
     Active Substance: DEXLANSOPRAZOLE
     Indication: Oesophagitis
  3. DEXILANT [Suspect]
     Active Substance: DEXLANSOPRAZOLE
     Indication: Ulcer

REACTIONS (9)
  - Renal impairment [Unknown]
  - Brain neoplasm [Unknown]
  - Illness [Unknown]
  - Off label use [Unknown]
  - Adjustment disorder [Unknown]
  - Abdominal distension [Unknown]
  - Nervousness [Unknown]
  - Vomiting [Unknown]
  - Abdominal discomfort [Unknown]

NARRATIVE: CASE EVENT DATE: 20240101
